FAERS Safety Report 26146722 (Version 2)
Quarter: 2025Q4

REPORT INFORMATION
  Report Type: Report from Study
  Country: US (occurrence: US)
  Receive Date: 20251211
  Receipt Date: 20251223
  Transmission Date: 20260118
  Serious: Yes (Hospitalization)
  Sender: BAUSCH AND LOMB
  Company Number: US-BAUSCH-BH-2025-020985

PATIENT
  Age: 59 Year
  Sex: Male

DRUGS (2)
  1. XIFAXAN [Suspect]
     Active Substance: RIFAXIMIN
     Indication: Hepatic encephalopathy
     Route: 065
     Dates: start: 20250527, end: 202509
  2. LACTULOSE [Concomitant]
     Active Substance: LACTULOSE

REACTIONS (4)
  - Hepatic encephalopathy [Unknown]
  - Condition aggravated [Unknown]
  - Oedema peripheral [Unknown]
  - Therapy interrupted [Unknown]

NARRATIVE: CASE EVENT DATE: 20250901
